FAERS Safety Report 14426292 (Version 4)
Quarter: 2018Q1

REPORT INFORMATION
  Report Type: Spontaneous
  Country: US (occurrence: US)
  Receive Date: 20180123
  Receipt Date: 20180208
  Transmission Date: 20180509
  Serious: No
  Sender: FDA-Public Use
  Company Number: US-ACTELION-A-US2018-166101

PATIENT
  Age: 81 Year
  Sex: Female

DRUGS (1)
  1. TRACLEER [Suspect]
     Active Substance: BOSENTAN
     Indication: PULMONARY ARTERIAL HYPERTENSION
     Dosage: 125 MG, BID
     Route: 048
     Dates: start: 20120727

REACTIONS (7)
  - Heart rate increased [Unknown]
  - Drug dose omission [Unknown]
  - Visual impairment [Unknown]
  - Cyanosis [Unknown]
  - Oedema [Unknown]
  - Blood pressure increased [Unknown]
  - Dyspnoea [Unknown]
